FAERS Safety Report 18039043 (Version 5)
Quarter: 2020Q4

REPORT INFORMATION
  Report Type: Report from Study
  Country: None (occurrence: US)
  Receive Date: 20200718
  Receipt Date: 20201216
  Transmission Date: 20210113
  Serious: Yes (Hospitalization, Other)
  Sender: FDA-Public Use
  Company Number: US-ABBVIE-20K-163-3483091-00

PATIENT
  Sex: Female
  Weight: 86.26 kg

DRUGS (3)
  1. OMEPRAZOLE. [Concomitant]
     Active Substance: OMEPRAZOLE
     Indication: PRODUCT USED FOR UNKNOWN INDICATION
  2. HUMIRA [Suspect]
     Active Substance: ADALIMUMAB
     Indication: ANKYLOSING SPONDYLITIS
     Dosage: CITRATE FREE
     Route: 058
     Dates: start: 2018, end: 202010
  3. LIPITOR [Concomitant]
     Active Substance: ATORVASTATIN CALCIUM
     Indication: PRODUCT USED FOR UNKNOWN INDICATION

REACTIONS (11)
  - Gastrointestinal carcinoma [Unknown]
  - Appendix cancer [Unknown]
  - Portal vein thrombosis [Unknown]
  - Blood iron decreased [Unknown]
  - Tumour marker increased [Unknown]
  - Neoplasm malignant [Unknown]
  - Gastric disorder [Unknown]
  - Cervical vertebral fracture [Unknown]
  - Constipation [Unknown]
  - Uveitis [Unknown]
  - Vomiting [Unknown]

NARRATIVE: CASE EVENT DATE: 2018
